FAERS Safety Report 4456182-9 (Version None)
Quarter: 2004Q3

REPORT INFORMATION
  Report Type: 
  Country: None (occurrence: None)
  Receive Date: 20040920
  Receipt Date: 20040907
  Transmission Date: 20050211
  Serious: Yes (Death, Hospitalization)
  Sender: FDA-Public Use
  Company Number: 04P-151-0272678-00

PATIENT
  Age: 55 Year
  Sex: Female

DRUGS (7)
  1. DEPAKENE [Suspect]
     Indication: SCHIZOAFFECTIVE DISORDER
     Dosage: 600 MG, 1 IN 1 D, PER ORAL
     Route: 048
     Dates: start: 20021001
  2. CLOZAPINE [Suspect]
     Indication: SCHIZOAFFECTIVE DISORDER
     Dosage: SEE IMAGE
     Route: 048
     Dates: start: 20040301, end: 20040301
  3. CLOZAPINE [Suspect]
     Indication: SCHIZOAFFECTIVE DISORDER
     Dosage: SEE IMAGE
     Route: 048
     Dates: start: 20040317, end: 20040324
  4. CLOZAPINE [Suspect]
     Indication: SCHIZOAFFECTIVE DISORDER
     Dosage: SEE IMAGE
     Route: 048
     Dates: start: 20010901
  5. CLOZAPINE [Suspect]
     Indication: SCHIZOAFFECTIVE DISORDER
     Dosage: SEE IMAGE
     Route: 048
     Dates: start: 20040324
  6. FLUVOXAMINE [Suspect]
     Indication: SCHIZOAFFECTIVE DISORDER
     Dosage: 100 MG, 1 IN 1 D, PER ORAL
     Route: 048
     Dates: start: 20040417
  7. LORAZEPAM [Suspect]
     Indication: SCHIZOAFFECTIVE DISORDER
     Dosage: DOSE DECREASED, PER ORAL
     Route: 048
     Dates: start: 20040414, end: 20040423

REACTIONS (3)
  - ANXIETY [None]
  - COMPLETED SUICIDE [None]
  - DROWNING [None]
